FAERS Safety Report 11173393 (Version 1)
Quarter: 2015Q2

REPORT INFORMATION
  Report Type: Spontaneous
  Country: FR (occurrence: FR)
  Receive Date: 20150608
  Receipt Date: 20150608
  Transmission Date: 20150821
  Serious: Yes (Hospitalization)
  Sender: FDA-Public Use
  Company Number: PHHY2015FR068024

PATIENT
  Age: 37 Year
  Sex: Female

DRUGS (3)
  1. CAFFEINE CITRATE,ERGOTAMINE TARTRATE [Suspect]
     Active Substance: CAFFEINE CITRATE\ERGOTAMINE TARTRATE
     Indication: MIGRAINE WITHOUT AURA
     Dosage: 2 MG, UNK
     Route: 054
  2. DIHYDROERGOTAMINE [Suspect]
     Active Substance: DIHYDROERGOTAMINE
     Indication: MIGRAINE WITHOUT AURA
     Dosage: 9 MG, UNK
     Route: 065
  3. SUMATRIPTAN SANDOZ [Suspect]
     Active Substance: SUMATRIPTAN
     Indication: MIGRAINE WITHOUT AURA
     Dosage: 6 MG, UNK
     Route: 058

REACTIONS (5)
  - Aphasia [Recovering/Resolving]
  - Gaze palsy [Recovering/Resolving]
  - Headache [Recovering/Resolving]
  - Cerebral haemorrhage [Recovering/Resolving]
  - Hemiplegia [Recovering/Resolving]
